FAERS Safety Report 9792930 (Version 4)
Quarter: 2014Q2

REPORT INFORMATION
  Report Type: Spontaneous
  Country: US (occurrence: US)
  Receive Date: 20140102
  Receipt Date: 20140505
  Transmission Date: 20141212
  Serious: Yes (Hospitalization, Other)
  Sender: FDA-Public Use
  Company Number: US-009507513-1312USA011696

PATIENT
  Sex: Female
  Weight: 83.45 kg

DRUGS (7)
  1. FOSAMAX [Suspect]
     Indication: OSTEOPOROSIS POSTMENOPAUSAL
     Dosage: 70 MG, QW
     Route: 048
     Dates: start: 2002, end: 2011
  2. FOSAMAX [Suspect]
     Indication: OSTEOPENIA
  3. ALENDRONATE SODIUM [Suspect]
     Indication: OSTEOPOROSIS POSTMENOPAUSAL
     Dosage: 70 MG, UNK
     Dates: start: 200506, end: 201106
  4. ALENDRONATE SODIUM [Suspect]
     Indication: OSTEOPENIA
  5. PREMARIN [Concomitant]
     Dosage: 0.625 MG, QD
     Route: 048
     Dates: start: 1997
  6. VITAMIN D (UNSPECIFIED) [Concomitant]
     Indication: OSTEOPENIA
  7. CALCIUM (UNSPECIFIED) [Concomitant]
     Indication: OSTEOPENIA

REACTIONS (34)
  - Intramedullary rod insertion [Unknown]
  - Anaemia [Unknown]
  - Femur fracture [Unknown]
  - Low turnover osteopathy [Unknown]
  - Blood cholesterol increased [Unknown]
  - Peptic ulcer [Unknown]
  - Oedema [Not Recovered/Not Resolved]
  - Psoriasis [Unknown]
  - Osteopenia [Unknown]
  - Osteoarthritis [Unknown]
  - Iron deficiency anaemia [Unknown]
  - Intervertebral disc degeneration [Unknown]
  - Fibromyalgia [Unknown]
  - Bursitis [Unknown]
  - Urinary tract infection [Recovered/Resolved]
  - Chest pain [Unknown]
  - Adverse event [Unknown]
  - Dysuria [Unknown]
  - Spinal osteoarthritis [Unknown]
  - Arthralgia [Unknown]
  - Pain [Unknown]
  - Constipation [Unknown]
  - Drug ineffective [Unknown]
  - Drug ineffective [Unknown]
  - Gastrooesophageal reflux disease [Unknown]
  - Arthralgia [Unknown]
  - Pain in extremity [Unknown]
  - Vomiting [Unknown]
  - Nausea [Unknown]
  - Neck pain [Unknown]
  - Nausea [Unknown]
  - Constipation [Recovering/Resolving]
  - Gastric ulcer [Unknown]
  - Pain in extremity [Unknown]
